FAERS Safety Report 8485794 (Version 3)
Quarter: 2013Q3

REPORT INFORMATION
  Report Type: Report from Study
  Country: US (occurrence: US)
  Receive Date: 20120330
  Receipt Date: 20130829
  Transmission Date: 20140515
  Serious: Yes (Hospitalization)
  Sender: FDA-Public Use
  Company Number: US-ELI_LILLY_AND_COMPANY-US201110000874

PATIENT
  Age: 71 Year
  Sex: Female

DRUGS (16)
  1. TERIPARATIDE [Suspect]
     Indication: SENILE OSTEOPOROSIS
     Dosage: 20 UG, QD
     Dates: start: 20110923
  2. TERIPARATIDE [Suspect]
     Dosage: 20 UG, QD
  3. TERIPARATIDE [Suspect]
     Dosage: 20 UG, QD
  4. CYMBALTA [Concomitant]
     Indication: DEPRESSION
     Dosage: 60 MG, QD
  5. OMEPRAZOLE [Concomitant]
  6. DILTIAZEM [Concomitant]
     Dosage: UNK
  7. LOVASTATIN [Concomitant]
     Dosage: UNK
  8. LOSARTAN POTASSIUM [Concomitant]
     Dosage: UNK
  9. MAGNESIUM [Concomitant]
     Dosage: UNK
  10. FUROSEMIDE [Concomitant]
     Dosage: UNK
  11. AMOXICILLIN [Concomitant]
     Dosage: UNK
  12. VITAMIN D [Concomitant]
     Dosage: UNK
  13. CALCIUM CITRATE [Concomitant]
     Dosage: UNK
  14. CLONIDINE [Concomitant]
     Dosage: UNK
  15. PROBIOTICS [Concomitant]
     Dosage: UNK
  16. ZOFRAN [Concomitant]
     Dosage: UNK

REACTIONS (13)
  - Colitis [Unknown]
  - Nausea [Unknown]
  - Musculoskeletal pain [Unknown]
  - Blood pressure fluctuation [Unknown]
  - Arthralgia [Unknown]
  - Myalgia [Unknown]
  - Drug dose omission [Unknown]
  - Diverticulitis [Unknown]
  - Vomiting [Unknown]
  - Nerve injury [Unknown]
  - Food intolerance [Unknown]
  - Thyroid neoplasm [Unknown]
  - Fall [Unknown]
